FAERS Safety Report 7318628-8 (Version None)
Quarter: 2011Q1

REPORT INFORMATION
  Report Type: 
  Country: None (occurrence: None)
  Receive Date: 20110228
  Receipt Date: 20110215
  Transmission Date: 20110831
  Serious: Yes (Hospitalization)
  Sender: FDA-Public Use
  Company Number: JP-JNJFOC-20100110160

PATIENT
  Sex: Male

DRUGS (11)
  1. FLOMOX [Suspect]
     Indication: INFECTION PARASITIC
     Route: 048
  2. OTHER COLD COMBINATION PREPARATIONS [Suspect]
     Indication: ILL-DEFINED DISORDER
     Route: 048
     Dates: start: 20100107, end: 20100112
  3. NAUZELIN [Suspect]
     Indication: ILL-DEFINED DISORDER
     Route: 048
  4. BIOFERMIN R [Concomitant]
     Indication: ANTIBIOTIC THERAPY
     Route: 048
  5. MUCOSOLVAN [Suspect]
     Indication: ILL-DEFINED DISORDER
     Route: 048
  6. NAUZELIN [Suspect]
     Indication: VOMITING
     Route: 054
  7. SALICYLAMIDE/ACETAMIN/CAFFEINE/PROMETHAZINE [Suspect]
     Indication: ILL-DEFINED DISORDER
     Route: 048
  8. ALL OTHER THERAPEUTIC PRODUCTS [Concomitant]
     Route: 065
  9. LEVOFLOXACIN [Suspect]
     Indication: PYREXIA
     Dosage: 200 MG, 3 IN 1 DAY
     Route: 048
  10. NAUZELIN [Suspect]
     Indication: NAUSEA
     Route: 054
  11. ACETAMINOPHEN [Suspect]
     Indication: ILL-DEFINED DISORDER
     Dosage: 10 TABLETS OF 300 MG FOR 3 DAYS AS NECESSARY
     Route: 048

REACTIONS (4)
  - TUBULOINTERSTITIAL NEPHRITIS [None]
  - RENAL DISORDER [None]
  - MALAISE [None]
  - VOMITING [None]
